FAERS Safety Report 9391084 (Version 1)
Quarter: 2013Q3

REPORT INFORMATION
  Report Type: Spontaneous
  Country: US (occurrence: US)
  Receive Date: 20130709
  Receipt Date: 20130709
  Transmission Date: 20140515
  Serious: No
  Sender: FDA-Public Use
  Company Number: US-PFIZER INC-2013200655

PATIENT
  Age: 53 Year
  Sex: Female
  Weight: 73.47 kg

DRUGS (1)
  1. LIPITOR [Suspect]
     Indication: HYPERCHOLESTEROLAEMIA
     Dosage: UNK, DAILY
     Route: 048
     Dates: start: 2012, end: 2012

REACTIONS (1)
  - Myalgia [Recovered/Resolved]
